FAERS Safety Report 7238114-3 (Version None)
Quarter: 2011Q1

REPORT INFORMATION
  Report Type: 
  Country: None (occurrence: None)
  Receive Date: 20110121
  Receipt Date: 20110110
  Transmission Date: 20110831
  Serious: Yes (Hospitalization, Other)
  Sender: FDA-Public Use
  Company Number: FR-ELI_LILLY_AND_COMPANY-FR201101001905

PATIENT
  Sex: Male
  Weight: 59 kg

DRUGS (3)
  1. GEMZAR [Suspect]
     Indication: TRANSITIONAL CELL CARCINOMA
     Dosage: 1640 MG, WEEKLY (1/W)
     Route: 042
     Dates: start: 20101109, end: 20101116
  2. PRIMPERAN TAB [Concomitant]
     Dosage: 30 MG, UNKNOWN
     Route: 048
     Dates: start: 20101101
  3. SOLUPRED [Concomitant]
     Dosage: 20 MG, DAILY (1/D)
     Route: 048
     Dates: start: 20101101

REACTIONS (5)
  - ACUTE RESPIRATORY DISTRESS SYNDROME [None]
  - INTERSTITIAL LUNG DISEASE [None]
  - EMPHYSEMA [None]
  - DEEP VEIN THROMBOSIS [None]
  - PULMONARY EMBOLISM [None]
